FAERS Safety Report 9053867 (Version 1)
Quarter: 2013Q1

REPORT INFORMATION
  Report Type: Report from Study
  Country: NL (occurrence: NL)
  Receive Date: 20130207
  Receipt Date: 20130207
  Transmission Date: 20140127
  Serious: Yes (Hospitalization)
  Sender: FDA-Public Use
  Company Number: NL-ABBOTT-13P-114-1044323-00

PATIENT
  Age: 30 None
  Sex: Male
  Weight: 105 kg

DRUGS (9)
  1. HUMIRA [Suspect]
     Indication: PSORIASIS
     Dosage: INITIAL DOSE
     Route: 058
     Dates: start: 20080501, end: 20080501
  2. HUMIRA [Suspect]
     Route: 058
  3. HYDROCHLOROTHIAZIDE [Concomitant]
     Indication: HYPERTENSION
  4. ADALAT OROS [Concomitant]
     Indication: HYPERTENSION
     Dates: start: 200910
  5. ADALAT OROS [Concomitant]
     Dates: end: 200910
  6. INFLUENZA VACCINE [Concomitant]
     Indication: ANTIVIRAL PROPHYLAXIS
     Dates: start: 200910, end: 200910
  7. SWINE FLU VACCINE MONOVALENT [Concomitant]
     Indication: ANTIVIRAL PROPHYLAXIS
     Dosage: TOTAL 2 DOSES (2 WKS BETWEEN DOSES)
     Dates: start: 200911, end: 200911
  8. HYDROCORTISON [Concomitant]
     Indication: ADDISON^S DISEASE
     Dosage: ONCE A DAY 2 TABLETS AND 2X/D 1 TABLET
     Dates: end: 20090719
  9. METFORMINE [Concomitant]
     Indication: TYPE 2 DIABETES MELLITUS
     Dates: end: 20090621

REACTIONS (1)
  - Parathyroid disorder [Recovered/Resolved]
